FAERS Safety Report 21519583 (Version 1)
Quarter: 2022Q4

REPORT INFORMATION
  Report Type: Spontaneous
  Country: US (occurrence: None)
  Receive Date: 20221027
  Receipt Date: 20221027
  Transmission Date: 20230113
  Serious: Yes (Hospitalization)
  Sender: FDA-Public Use
  Company Number: None

PATIENT
  Age: 27 Year
  Sex: Male
  Weight: 69.85 kg

DRUGS (1)
  1. BACLOFEN [Suspect]
     Active Substance: BACLOFEN
     Indication: Pain

REACTIONS (5)
  - Intentional overdose [None]
  - Suicide attempt [None]
  - Confusional state [None]
  - Sedation [None]
  - Palpitations [None]

NARRATIVE: CASE EVENT DATE: 20220929
